FAERS Safety Report 7725962-6 (Version None)
Quarter: 2011Q3

REPORT INFORMATION
  Report Type: 
  Country: None (occurrence: None)
  Receive Date: 20110902
  Receipt Date: 20110822
  Transmission Date: 20111222
  Serious: Yes (Other)
  Sender: FDA-Public Use
  Company Number: US-ELI_LILLY_AND_COMPANY-US201107008111

PATIENT
  Sex: Female
  Weight: 63.946 kg

DRUGS (1)
  1. EVISTA [Suspect]
     Dosage: 60 MG, QD
     Route: 048
     Dates: start: 20040101, end: 20110401

REACTIONS (3)
  - LUNG NEOPLASM [None]
  - BREAST CANCER [None]
  - FIBROADENOMA OF BREAST [None]
